FAERS Safety Report 10047219 (Version 1)
Quarter: 2014Q1

REPORT INFORMATION
  Report Type: Spontaneous
  Country: US (occurrence: None)
  Receive Date: 20140328
  Receipt Date: 20140328
  Transmission Date: 20141002
  Serious: Yes (Other)
  Sender: FDA-Public Use
  Company Number: None

PATIENT
  Age: 58 Year
  Sex: Female
  Weight: 75.3 kg

DRUGS (2)
  1. IFOSFAMIDE [Suspect]
  2. PACLITAXEL [Suspect]

REACTIONS (3)
  - Vomiting [None]
  - Neutropenia [None]
  - Blood creatinine increased [None]
